FAERS Safety Report 8974116 (Version 1)
Quarter: 2012Q4

REPORT INFORMATION
  Report Type: Spontaneous
  Country: US (occurrence: None)
  Receive Date: 20121217
  Receipt Date: 20121217
  Transmission Date: 20130627
  Serious: Yes (Hospitalization)
  Sender: FDA-Public Use
  Company Number: None

PATIENT
  Age: 64 Year
  Sex: Female
  Weight: 74.1 kg

DRUGS (1)
  1. DABIGATRAN [Suspect]
     Indication: AFIB
     Dosage: 150 MG BID PO
     Route: 048
     Dates: start: 20120509, end: 20120616

REACTIONS (3)
  - Haemorrhage [None]
  - Intestinal ischaemia [None]
  - Thrombosis [None]
